FAERS Safety Report 4395478-6 (Version None)
Quarter: 2004Q3

REPORT INFORMATION
  Report Type: 
  Country: None (occurrence: None)
  Receive Date: 20040708
  Receipt Date: 20040630
  Transmission Date: 20050211
  Serious: Yes (Death, Other)
  Sender: FDA-Public Use
  Company Number: 2004212034US

PATIENT
  Age: 31 Year
  Sex: Male
  Weight: 133.3 kg

DRUGS (2)
  1. XANAX [Suspect]
  2. METHADONE HCL [Suspect]

REACTIONS (8)
  - ASPIRATION [None]
  - BRAIN OEDEMA [None]
  - CARDIOMEGALY [None]
  - CORONARY ARTERY ATHEROSCLEROSIS [None]
  - CORONARY ARTERY OCCLUSION [None]
  - DRUG TOXICITY [None]
  - HEPATIC STEATOSIS [None]
  - HEPATOMEGALY [None]
